FAERS Safety Report 5724697-9 (Version None)
Quarter: 2008Q2

REPORT INFORMATION
  Report Type: 
  Country: None (occurrence: None)
  Receive Date: 20080428
  Receipt Date: 20080410
  Transmission Date: 20081010
  Serious: Yes (Hospitalization)
  Sender: FDA-Public Use
  Company Number: GRP08000017

PATIENT
  Sex: Male

DRUGS (1)
  1. DANTROLENE SODIUM [Suspect]
     Dosage: ORAL
     Dates: start: 19980101

REACTIONS (2)
  - FIBROSIS [None]
  - MYELODYSPLASTIC SYNDROME [None]
